FAERS Safety Report 12733674 (Version 2)
Quarter: 2018Q1

REPORT INFORMATION
  Report Type: Spontaneous
  Country: US (occurrence: US)
  Receive Date: 20160912
  Receipt Date: 20180228
  Transmission Date: 20180508
  Serious: No
  Sender: FDA-Public Use
  Company Number: US-ASTRAZENECA-2016SE79984

PATIENT
  Sex: Male
  Weight: 74.8 kg

DRUGS (2)
  1. BRILINTA [Suspect]
     Active Substance: TICAGRELOR
     Indication: CEREBROVASCULAR ACCIDENT
     Route: 048
     Dates: start: 2014
  2. BRILINTA [Suspect]
     Active Substance: TICAGRELOR
     Indication: CEREBROVASCULAR ACCIDENT
     Route: 048

REACTIONS (6)
  - Stress fracture [Unknown]
  - Ulcer [Unknown]
  - Contusion [Not Recovered/Not Resolved]
  - Gastrooesophageal reflux disease [Unknown]
  - Off label use [Unknown]
  - Hiatus hernia [Unknown]
